FAERS Safety Report 22979421 (Version 2)
Quarter: 2025Q1

REPORT INFORMATION
  Report Type: Spontaneous
  Country: US (occurrence: US)
  Receive Date: 20230925
  Receipt Date: 20250116
  Transmission Date: 20250409
  Serious: No
  Sender: PFIZER
  Company Number: US-PFIZER INC-202300307464

PATIENT
  Sex: Female

DRUGS (1)
  1. DIFLUCAN [Suspect]
     Active Substance: FLUCONAZOLE

REACTIONS (2)
  - Drug hypersensitivity [Unknown]
  - Gastrointestinal disorder [Unknown]
